FAERS Safety Report 8548437-3 (Version None)
Quarter: 2012Q2

REPORT INFORMATION
  Report Type: 
  Country: None (occurrence: None)
  Receive Date: 20120416
  Receipt Date: 20100804
  Transmission Date: 20120825
  Serious: Yes (Other)
  Sender: FDA-Public Use
  Company Number: PHHY2010US51522

PATIENT

DRUGS (1)
  1. DIOVAN [Suspect]
     Dosage: ORAL
     Route: 048

REACTIONS (2)
  - HYPOTENSION [None]
  - DIZZINESS [None]
